FAERS Safety Report 11336816 (Version 1)
Quarter: 2015Q3

REPORT INFORMATION
  Report Type: Spontaneous
  Country: US (occurrence: US)
  Receive Date: 20150804
  Receipt Date: 20150804
  Transmission Date: 20151125
  Serious: Yes (Death, Other)
  Sender: FDA-Public Use
  Company Number: US-BAYER-2015-388539

PATIENT
  Age: 18 Year
  Sex: Female

DRUGS (5)
  1. ALBUTEROL. [Concomitant]
     Active Substance: ALBUTEROL
     Indication: ASTHMA
  2. DEPO-PROVERA [Concomitant]
     Active Substance: MEDROXYPROGESTERONE ACETATE
  3. PARACETAMOL + PSEUDOEPHEDRINE + DEXTROMETHORPHAN + DOXYLAMINE [Suspect]
     Active Substance: ACETAMINOPHEN\DEXTROMETHORPHAN\DOXYLAMINE\PSEUDOEPHEDRINE
     Indication: SLEEP DISORDER THERAPY
  4. PARACETAMOL [Suspect]
     Active Substance: ACETAMINOPHEN
  5. DIFLUCAN [Concomitant]
     Active Substance: FLUCONAZOLE
     Indication: CANDIDA INFECTION

REACTIONS (8)
  - Diabetic ketoacidosis [Fatal]
  - Liver injury [None]
  - Renal injury [None]
  - Arrhythmia [None]
  - Contusion [None]
  - Diabetes mellitus [Fatal]
  - Hyperglycaemia [None]
  - Toxicity to various agents [None]
